FAERS Safety Report 5192125-0 (Version None)
Quarter: 2006Q4

REPORT INFORMATION
  Report Type: 
  Country: None (occurrence: None)
  Receive Date: 20061220
  Receipt Date: 20061204
  Transmission Date: 20070319
  Serious: Yes (Life-Threatening, Hospitalization)
  Sender: FDA-Public Use
  Company Number: DSA_29096_2006

PATIENT
  Age: 62 Year
  Sex: Female

DRUGS (5)
  1. ENALAPRIL MALEATE [Suspect]
     Indication: HYPERTENSION
     Dosage: 10 MG Q DAY PO
     Route: 048
     Dates: start: 20040101
  2. ETORICOXIB [Suspect]
     Indication: ARTHRALGIA
     Dosage: DF PO
     Route: 048
  3. DETRALEX [Concomitant]
  4. BETALOC /00376902/ [Concomitant]
  5. PREDUCTAL /00489601/ [Concomitant]

REACTIONS (11)
  - ALANINE AMINOTRANSFERASE INCREASED [None]
  - ANGIONEUROTIC OEDEMA [None]
  - BLOOD BILIRUBIN UNCONJUGATED [None]
  - BLOOD CHOLESTEROL INCREASED [None]
  - BLOOD CREATINE PHOSPHOKINASE MB INCREASED [None]
  - BLOOD GLUCOSE INCREASED [None]
  - BLOOD UREA INCREASED [None]
  - EOSINOPHIL COUNT DECREASED [None]
  - LARYNGEAL OEDEMA [None]
  - NEUTROPHIL COUNT INCREASED [None]
  - RASH GENERALISED [None]
